FAERS Safety Report 5189337-9 (Version None)
Quarter: 2006Q4

REPORT INFORMATION
  Report Type: 
  Country: None (occurrence: None)
  Receive Date: 20061215
  Receipt Date: 20061206
  Transmission Date: 20070319
  Serious: Yes (Hospitalization)
  Sender: FDA-Public Use
  Company Number: 2006AL003853

PATIENT
  Age: 49 Year
  Sex: Male

DRUGS (7)
  1. DICLOFENAC SODIUM [Suspect]
     Indication: OSTEOARTHRITIS
     Dosage: 50 MG; TID;
  2. DEPAKOTE [Concomitant]
  3. HYOSCINE HBR HYT [Concomitant]
  4. SENNA [Concomitant]
  5. BISACODYL [Concomitant]
  6. LACTULOSE [Concomitant]
  7. CLOZARIL [Concomitant]

REACTIONS (5)
  - DEEP VEIN THROMBOSIS [None]
  - GASTRIC CANCER [None]
  - GASTRIC ULCER PERFORATION [None]
  - GASTRITIS [None]
  - PULMONARY EMBOLISM [None]
